FAERS Safety Report 6702896-7 (Version None)
Quarter: 2010Q2

REPORT INFORMATION
  Report Type: 
  Country: None (occurrence: None)
  Receive Date: 20100429
  Receipt Date: 20100416
  Transmission Date: 20101027
  Serious: Yes (Hospitalization)
  Sender: FDA-Public Use
  Company Number: US-ELI_LILLY_AND_COMPANY-US201004006959

PATIENT
  Age: 47 Year
  Sex: Female

DRUGS (1)
  1. SYMBYAX [Suspect]
     Dosage: 1 D/F, UNKNOWN
     Route: 065
     Dates: start: 20100407, end: 20100409

REACTIONS (2)
  - DYSPHAGIA [None]
  - SWOLLEN TONGUE [None]
